FAERS Safety Report 5456432-6 (Version None)
Quarter: 2007Q3

REPORT INFORMATION
  Report Type: 
  Country: None (occurrence: None)
  Receive Date: 20070918
  Receipt Date: 20070905
  Transmission Date: 20080115
  Serious: Yes (Hospitalization)
  Sender: FDA-Public Use
  Company Number: DE-BAYER-200710990BVD

PATIENT
  Sex: Male

DRUGS (9)
  1. SORAFENIB [Suspect]
     Indication: NON-SMALL CELL LUNG CANCER
     Route: 048
     Dates: start: 20070821
  2. GEMCITABINE HCL [Suspect]
     Indication: NON-SMALL CELL LUNG CANCER
     Route: 042
     Dates: start: 20070828, end: 20070828
  3. GEMCITABINE HCL [Suspect]
     Route: 042
     Dates: start: 20070821, end: 20070821
  4. CISPLATIN [Suspect]
     Indication: NON-SMALL CELL LUNG CANCER
     Route: 042
     Dates: start: 20070821, end: 20070821
  5. PIPERACILLIN [Concomitant]
     Route: 042
     Dates: start: 20070901
  6. COMBACTAM [Concomitant]
     Route: 042
     Dates: start: 20070901
  7. PARACETAMOL [Concomitant]
     Route: 048
     Dates: start: 20070901
  8. GANOCYTE 34 [Concomitant]
     Route: 058
     Dates: start: 20070902
  9. AMPHO-MORONAL [Concomitant]
     Route: 048
     Dates: start: 20070904

REACTIONS (3)
  - PANCYTOPENIA [None]
  - PNEUMONIA [None]
  - SEPSIS [None]
